FAERS Safety Report 14860957 (Version 3)
Quarter: 2018Q4

REPORT INFORMATION
  Report Type: Report from Study
  Country: DE (occurrence: DE)
  Receive Date: 20180508
  Receipt Date: 20181114
  Transmission Date: 20190204
  Serious: Yes (Hospitalization)
  Sender: FDA-Public Use
  Company Number: DE-ACCORD-066570

PATIENT
  Age: 5 Year
  Sex: Male
  Weight: 21 kg

DRUGS (6)
  1. NAPROXEN. [Suspect]
     Active Substance: NAPROXEN
     Indication: STILL^S DISEASE
     Route: 048
     Dates: start: 20161110
  2. PREDNISONE. [Concomitant]
     Active Substance: PREDNISONE
     Indication: STILL^S DISEASE
     Route: 048
     Dates: start: 20151030
  3. INDOMETACIN [Concomitant]
     Active Substance: INDOMETHACIN
     Indication: STILL^S DISEASE
     Route: 048
     Dates: start: 20120703
  4. ROACTEMRA [Suspect]
     Active Substance: TOCILIZUMAB
     Indication: STILL^S DISEASE
     Route: 042
     Dates: start: 20151030, end: 20160114
  5. METHOTREXATE. [Suspect]
     Active Substance: METHOTREXATE
     Indication: STILL^S DISEASE
     Route: 058
     Dates: start: 20150512, end: 20151106
  6. IBUPROFEN. [Suspect]
     Active Substance: IBUPROFEN
     Indication: STILL^S DISEASE
     Route: 048

REACTIONS (4)
  - Intracranial pressure increased [Recovered/Resolved]
  - Pleural effusion [Recovering/Resolving]
  - Pneumonia [Not Recovered/Not Resolved]
  - Headache [Recovered/Resolved]

NARRATIVE: CASE EVENT DATE: 20160124
